FAERS Safety Report 15325905 (Version 3)
Quarter: 2018Q4

REPORT INFORMATION
  Report Type: Spontaneous
  Country: US (occurrence: US)
  Receive Date: 20180828
  Receipt Date: 20181022
  Transmission Date: 20190204
  Serious: No
  Sender: FDA-Public Use
  Company Number: US-PFIZER INC-2018343837

PATIENT
  Age: 68 Year
  Sex: Male
  Weight: 93 kg

DRUGS (3)
  1. LYRICA [Suspect]
     Active Substance: PREGABALIN
     Indication: NEURALGIA
     Dosage: 75 MG, 1X/DAY
     Dates: start: 20180808
  2. LYRICA [Suspect]
     Active Substance: PREGABALIN
     Dosage: 75 MG, 2X/DAY
     Dates: start: 20180808
  3. NAPROXEN SODIUM. [Concomitant]
     Active Substance: NAPROXEN SODIUM
     Indication: NEURALGIA
     Dosage: 2 DF, UNK (IT IS LIKE TWO AND THREE TIMES A DAY)
     Route: 049
     Dates: start: 20170715

REACTIONS (2)
  - Muscle injury [Unknown]
  - Intentional product use issue [Unknown]
